FAERS Safety Report 10368926 (Version 1)
Quarter: 2014Q1

REPORT INFORMATION
  Report Type: Spontaneous
  Country: US (occurrence: None)
  Receive Date: 20140306
  Receipt Date: 20140306
  Transmission Date: 20141002
  Serious: Yes (Other)
  Sender: FDA-Public Use
  Company Number: 163-21880-13091721

PATIENT
  Age: 73 Year
  Sex: Male
  Weight: 118.84 kg

DRUGS (3)
  1. REVLIMID [Suspect]
     Indication: PLASMA CELL MYELOMA
     Dosage: 25 MG, 21 IN 28 D{
     Route: 048
     Dates: start: 201306
  2. VELCADE (BORTEZOMIB) [Concomitant]
     Dates: start: 20130822
  3. DEXAMETHASONE [Concomitant]

REACTIONS (1)
  - Nausea [None]
